FAERS Safety Report 26192649 (Version 1)
Quarter: 2025Q4

REPORT INFORMATION
  Report Type: Spontaneous
  Country: GB (occurrence: GB)
  Receive Date: 20251223
  Receipt Date: 20251223
  Transmission Date: 20260118
  Serious: Yes (Other)
  Sender: TEVA
  Company Number: None

PATIENT
  Age: 37 Year
  Sex: Female

DRUGS (2)
  1. PROPRANOLOL [Suspect]
     Active Substance: PROPRANOLOL HYDROCHLORIDE
     Indication: Migraine prophylaxis
     Dosage: 10-20 MG TDS
     Route: 065
     Dates: start: 20251001, end: 202511
  2. ESCITALOPRAM [Concomitant]
     Active Substance: ESCITALOPRAM OXALATE
     Indication: Antidepressant therapy
     Route: 065
     Dates: start: 2022

REACTIONS (9)
  - Brain fog [Recovering/Resolving]
  - Neuralgia [Recovering/Resolving]
  - Peripheral coldness [Recovering/Resolving]
  - Hypoaesthesia [Recovering/Resolving]
  - Muscular weakness [Recovering/Resolving]
  - Palpitations [Recovered/Resolved]
  - Fine motor skill dysfunction [Recovering/Resolving]
  - Maternal exposure during breast feeding [Unknown]
  - Paraesthesia [Recovered/Resolved]

NARRATIVE: CASE EVENT DATE: 20251001
